FAERS Safety Report 7356016-9 (Version None)
Quarter: 2011Q1

REPORT INFORMATION
  Report Type: 
  Country: None (occurrence: None)
  Receive Date: 20110310
  Receipt Date: 20110310
  Transmission Date: 20110831
  Serious: Yes (Life-Threatening, Hospitalization, Disabling)
  Sender: FDA-Public Use
  Company Number: None

PATIENT
  Age: 89 Year
  Sex: Female
  Weight: 43.0917 kg

DRUGS (3)
  1. NORVASC [Suspect]
  2. MEGACE [Suspect]
  3. REMERON [Suspect]

REACTIONS (7)
  - WEIGHT DECREASED [None]
  - CONVULSION [None]
  - DRUG INTERACTION [None]
  - DEHYDRATION [None]
  - HYPERTENSION [None]
  - DEPRESSION [None]
  - FATIGUE [None]
